FAERS Safety Report 7777501-1 (Version None)
Quarter: 2011Q3

REPORT INFORMATION
  Report Type: 
  Country: None (occurrence: None)
  Receive Date: 20110926
  Receipt Date: 20110916
  Transmission Date: 20111222
  Serious: Yes (Death, Hospitalization)
  Sender: FDA-Public Use
  Company Number: TR-NOVOPROD-333768

PATIENT

DRUGS (5)
  1. NORDITROPIN [Suspect]
     Dosage: 0.4 MG, QD
     Dates: start: 20100917
  2. DEXAMETHASONE [Concomitant]
     Indication: DEXAMETHASONE SUPPRESSION TEST
  3. NORDITROPIN [Suspect]
     Indication: HYPOPITUITARISM
     Dosage: 0.6 MG, QD
     Dates: start: 20100310, end: 20100903
  4. INSULIN [Concomitant]
     Indication: DIABETES MELLITUS
  5. PREDNISOLONE [Concomitant]
     Dosage: 5 MG, QD

REACTIONS (5)
  - PITUITARY-DEPENDENT CUSHING'S SYNDROME [None]
  - MYOCARDIAL INFARCTION [None]
  - PRE-EXISTING CONDITION IMPROVED [None]
  - RENAL FAILURE [None]
  - CARDIAC FAILURE [None]
